FAERS Safety Report 14032085 (Version 3)
Quarter: 2018Q2

REPORT INFORMATION
  Report Type: Spontaneous
  Country: US (occurrence: US)
  Receive Date: 20171002
  Receipt Date: 20180620
  Transmission Date: 20180711
  Serious: Yes (Hospitalization, Other)
  Sender: FDA-Public Use
  Company Number: US-PFIZER INC-2017415360

PATIENT
  Age: 56 Year
  Sex: Female

DRUGS (1)
  1. XELJANZ [Suspect]
     Active Substance: TOFACITINIB CITRATE
     Dosage: 5 MG, UNK
     Dates: start: 201307

REACTIONS (7)
  - Fall [Unknown]
  - Facial bones fracture [Unknown]
  - Cerebral haemorrhage [Unknown]
  - Memory impairment [Unknown]
  - Loss of consciousness [Unknown]
  - Urinary tract infection [Unknown]
  - Cough [Unknown]
